FAERS Safety Report 6047651-9 (Version None)
Quarter: 2009Q1

REPORT INFORMATION
  Report Type: 
  Country: None (occurrence: None)
  Receive Date: 20090123
  Receipt Date: 20090113
  Transmission Date: 20090719
  Serious: Yes (Hospitalization)
  Sender: FDA-Public Use
  Company Number: US-WYE-H07742609

PATIENT
  Sex: Female

DRUGS (15)
  1. EFFEXOR XR [Suspect]
     Indication: MAJOR DEPRESSION
     Route: 048
     Dates: start: 20070115, end: 20070208
  2. EFFEXOR XR [Suspect]
     Route: 048
     Dates: start: 20070209, end: 20070416
  3. EFFEXOR XR [Suspect]
     Route: 048
     Dates: start: 20070417, end: 20070725
  4. EFFEXOR XR [Suspect]
     Route: 048
     Dates: start: 20070726, end: 20070812
  5. EFFEXOR XR [Suspect]
     Dates: start: 20070813, end: 20080101
  6. EFFEXOR XR [Suspect]
     Dates: start: 20080101, end: 20080101
  7. EFFEXOR XR [Suspect]
     Route: 048
     Dates: start: 20080101, end: 20081002
  8. QUETIAPINE FUMARATE [Concomitant]
     Indication: INSOMNIA
     Dosage: 1 MG
     Dates: start: 20071123
  9. XANAX [Concomitant]
  10. CHANTIX [Concomitant]
  11. CHANTIX [Concomitant]
  12. LEXAPRO [Concomitant]
  13. LEXAPRO [Concomitant]
  14. ALPRAZOLAM [Concomitant]
     Dosage: 0.25 MG TID PRN
  15. ALPRAZOLAM [Concomitant]
     Dosage: ^MINIMAL USE^

REACTIONS (1)
  - CARDIAC DISORDER [None]
